FAERS Safety Report 4941510-8 (Version None)
Quarter: 2006Q1

REPORT INFORMATION
  Report Type: 
  Country: None (occurrence: None)
  Receive Date: 20060310
  Receipt Date: 20060301
  Transmission Date: 20060701
  Serious: Yes (Hospitalization, Other)
  Sender: FDA-Public Use
  Company Number: 2006-03-0062

PATIENT
  Age: 68 Year
  Sex: Male
  Weight: 83.9154 kg

DRUGS (8)
  1. INTEGRILIN [Suspect]
     Dosage: 180-2 UG/KG* INTRAVENOUS
     Route: 042
     Dates: start: 20050729, end: 20050730
  2. BIVALIRUDIN INJECTABLE SOLUTION [Suspect]
     Dosage: 0.1-0.25 MG* INTRAVENOUS
     Route: 042
     Dates: start: 20050729, end: 20050729
  3. HEPARIN [Suspect]
     Dosage: 5000-1000 U* INTRAVENOUS
     Route: 042
     Dates: start: 20050729, end: 20050729
  4. ASPIRIN [Concomitant]
  5. PROTONIX [Concomitant]
  6. ALEVE [Concomitant]
  7. VICODIN [Concomitant]
  8. PERCOCET [Concomitant]

REACTIONS (5)
  - ARTERIOVENOUS FISTULA [None]
  - HAEMATOMA [None]
  - PLATELET COUNT DECREASED [None]
  - PROCEDURAL COMPLICATION [None]
  - VASCULAR PSEUDOANEURYSM [None]
